FAERS Safety Report 8610566-3 (Version None)
Quarter: 2012Q3

REPORT INFORMATION
  Report Type: 
  Country: None (occurrence: None)
  Receive Date: 20120423
  Receipt Date: 20100603
  Transmission Date: 20120928
  Serious: Yes (Other)
  Sender: FDA-Public Use
  Company Number: PHHY2010US23818

PATIENT
  Age: 49 Year
  Sex: Female

DRUGS (3)
  1. FEMARA [Suspect]
  2. AMBIEN [Concomitant]
  3. EFFEXOR [Concomitant]

REACTIONS (3)
  - MYALGIA [None]
  - ARTHRALGIA [None]
  - JOINT SWELLING [None]
